FAERS Safety Report 24995914 (Version 1)
Quarter: 2025Q1

REPORT INFORMATION
  Report Type: Spontaneous
  Country: US (occurrence: US)
  Receive Date: 20250221
  Receipt Date: 20250221
  Transmission Date: 20250408
  Serious: No
  Sender: CATALYST PHARMA
  Company Number: US-CATALYST PHARMACEUTICALS-US-CATA-24-01398

PATIENT
  Age: 10 Year
  Sex: Male
  Weight: 34.467 kg

DRUGS (4)
  1. AGAMREE [Suspect]
     Active Substance: VAMOROLONE
     Indication: Duchenne muscular dystrophy
     Dosage: 5.4 ML ONCE DAILY
     Route: 048
     Dates: start: 20240925
  2. LISINOPRIL [Concomitant]
     Active Substance: LISINOPRIL
     Indication: Product used for unknown indication
     Dosage: 2.5 MG DAILY
     Route: 065
  3. METOPROLOL [Concomitant]
     Active Substance: METOPROLOL
     Indication: Product used for unknown indication
     Dosage: 12.5 MG DAILY
     Route: 065
  4. FLINTSTONE VITAMIN [Concomitant]
     Indication: Product used for unknown indication
     Dosage: 1 DAILY
     Route: 065

REACTIONS (2)
  - Asthenia [Not Recovered/Not Resolved]
  - Gait inability [Not Recovered/Not Resolved]

NARRATIVE: CASE EVENT DATE: 20241001
